FAERS Safety Report 19484701 (Version 1)
Quarter: 2021Q3

REPORT INFORMATION
  Report Type: Spontaneous
  Country: MY (occurrence: MY)
  Receive Date: 20210702
  Receipt Date: 20210702
  Transmission Date: 20211014
  Serious: Yes (Hospitalization, Other)
  Sender: FDA-Public Use
  Company Number: MY-NOVAST LABORATORIES INC.-2021NOV000276

PATIENT
  Age: 47 Year
  Sex: Male

DRUGS (1)
  1. PRIMAQUINE [Suspect]
     Active Substance: PRIMAQUINE PHOSPHATE
     Indication: PLASMODIUM VIVAX INFECTION
     Dosage: DAILY
     Route: 065

REACTIONS (4)
  - Chest pain [Unknown]
  - Methaemoglobinaemia [Unknown]
  - Haemolytic anaemia [Recovered/Resolved]
  - Cerebrovascular accident [Recovering/Resolving]
